FAERS Safety Report 8585023-3 (Version None)
Quarter: 2012Q3

REPORT INFORMATION
  Report Type: 
  Country: None (occurrence: None)
  Receive Date: 20120730
  Receipt Date: 20120713
  Transmission Date: 20120928
  Serious: Yes (Hospitalization)
  Sender: FDA-Public Use
  Company Number: TPA2012A04592

PATIENT
  Age: 14 Month
  Sex: Male

DRUGS (1)
  1. PREVACID [Suspect]
     Dosage: ORAL
     Route: 048

REACTIONS (3)
  - ABDOMINAL PAIN UPPER [None]
  - VOMITING [None]
  - PRODUCT FORMULATION ISSUE [None]
